FAERS Safety Report 8179624-4 (Version None)
Quarter: 2012Q1

REPORT INFORMATION
  Report Type: 
  Country: None (occurrence: None)
  Receive Date: 20120302
  Receipt Date: 20120228
  Transmission Date: 20120608
  Serious: Yes (Life-Threatening, Hospitalization)
  Sender: FDA-Public Use
  Company Number: GB-GENZYME-CLOF-1001994

PATIENT
  Sex: Male

DRUGS (5)
  1. EVOLTRA [Suspect]
     Dosage: UNK
     Route: 065
     Dates: start: 20111212, end: 20111216
  2. PLERIXAFOR [Suspect]
     Indication: HAEMATOLOGICAL MALIGNANCY
     Dosage: UNK
     Route: 065
     Dates: start: 20111110, end: 20111216
  3. DAUNORUBICIN HCL [Suspect]
     Dosage: UNK
     Route: 065
     Dates: start: 20111212, end: 20111216
  4. EVOLTRA [Suspect]
     Indication: HAEMATOLOGICAL MALIGNANCY
     Dosage: UNK
     Route: 065
     Dates: start: 20111110
  5. DAUNORUBICIN HCL [Suspect]
     Indication: HAEMATOLOGICAL MALIGNANCY
     Dosage: UNK
     Route: 065
     Dates: start: 20111110

REACTIONS (6)
  - PLEURAL EFFUSION [None]
  - THROMBOCYTOPENIA [None]
  - SEPSIS [None]
  - BONE MARROW FAILURE [None]
  - PANCYTOPENIA [None]
  - NEUTROPENIC INFECTION [None]
